FAERS Safety Report 17467365 (Version 2)
Quarter: 2020Q1

REPORT INFORMATION
  Report Type: Spontaneous
  Country: US (occurrence: US)
  Receive Date: 20200227
  Receipt Date: 20200302
  Transmission Date: 20200409
  Serious: No
  Sender: FDA-Public Use
  Company Number: US-PFIZER INC-2020086760

PATIENT
  Age: 67 Year
  Sex: Female
  Weight: 83.91 kg

DRUGS (1)
  1. GABAPENTIN. [Suspect]
     Active Substance: GABAPENTIN
     Dosage: UNK

REACTIONS (4)
  - Fatigue [Unknown]
  - Lethargy [Unknown]
  - Cognitive disorder [Unknown]
  - Feeling abnormal [Unknown]
